FAERS Safety Report 6414305-6 (Version None)
Quarter: 2009Q4

REPORT INFORMATION
  Report Type: 
  Country: None (occurrence: None)
  Receive Date: 20091026
  Receipt Date: 20091020
  Transmission Date: 20100525
  Serious: Yes (Other)
  Sender: FDA-Public Use
  Company Number: FR-BRISTOL-MYERS SQUIBB COMPANY-14826267

PATIENT

DRUGS (2)
  1. SPRYCEL [Suspect]
  2. ABILIFY [Interacting]

REACTIONS (6)
  - ATRIAL FIBRILLATION [None]
  - DRUG INTERACTION [None]
  - HEPATITIS [None]
  - INFECTION [None]
  - PLEURISY [None]
  - RHABDOMYOLYSIS [None]
